FAERS Safety Report 5042168-2 (Version None)
Quarter: 2006Q2

REPORT INFORMATION
  Report Type: 
  Country: None (occurrence: None)
  Receive Date: 20060627
  Receipt Date: 20060615
  Transmission Date: 20061013
  Serious: Yes (Life-Threatening)
  Sender: FDA-Public Use
  Company Number: 06H-163-0308490-00

PATIENT
  Age: 50 Year
  Sex: Male

DRUGS (11)
  1. MEPIVACAINE HYDROCHLORIDE [Suspect]
     Indication: NERVE BLOCK
     Dosage: 45 ML
  2. AMITRIPTYLINE (AMITRIPTYLINE) [Suspect]
     Indication: DRUG USE FOR UNKNOWN INDICATION
     Dosage: 100MG QHS
  3. CYCLOBENZAPRINE (CYCLOBENXAPRINE) [Suspect]
     Indication: DRUG USE FOR UNKNOWN INDICATION
  4. METOPROLOL (METOPROLOL) [Suspect]
     Indication: DRUG USE FOR UNKNOWN INDICATION
  5. NIFEDIPINE [Suspect]
     Indication: DRUG USE FOR UNKNOWN INDICATION
  6. OMEPRAZOLE [Suspect]
     Indication: DRUG USE FOR UNKNOWN INDICATION
  7. SERTRALINE [Suspect]
     Indication: DRUG USE FOR UNKNOWN INDICATION
  8. ASPIRIN [Concomitant]
  9. INSULIN [Concomitant]
  10. 1% TETRACAINE (TETRACAINE) [Concomitant]
  11. EPINEPHRINE [Concomitant]

REACTIONS (10)
  - ARRHYTHMIA [None]
  - ATRIOVENTRICULAR BLOCK THIRD DEGREE [None]
  - BRADYCARDIA [None]
  - CARDIAC ARREST [None]
  - CARDIOTOXICITY [None]
  - DRUG INTERACTION [None]
  - ENZYME ABNORMALITY [None]
  - HYPOTENSION [None]
  - SINOATRIAL BLOCK [None]
  - SINUS ARRHYTHMIA [None]
